FAERS Safety Report 10255629 (Version 1)
Quarter: 2014Q2

REPORT INFORMATION
  Report Type: Spontaneous
  Country: US (occurrence: None)
  Receive Date: 20140620
  Receipt Date: 20140620
  Transmission Date: 20141212
  Serious: Yes (Hospitalization)
  Sender: FDA-Public Use
  Company Number: CIO14042008

PATIENT
  Age: 3 Year
  Sex: Male

DRUGS (1)
  1. NYQUIL [Suspect]
     Route: 048
     Dates: start: 20140201, end: 20140201

REACTIONS (3)
  - Vomiting [None]
  - Accidental exposure to product by child [None]
  - Exposure via ingestion [None]
